FAERS Safety Report 14031798 (Version 1)
Quarter: 2017Q4

REPORT INFORMATION
  Report Type: Spontaneous
  Country: PT (occurrence: PT)
  Receive Date: 20171002
  Receipt Date: 20171002
  Transmission Date: 20180321
  Serious: Yes (Other)
  Sender: FDA-Public Use
  Company Number: PT-JNJFOC-20170925794

PATIENT
  Sex: Male

DRUGS (2)
  1. DARZALEX [Suspect]
     Active Substance: DARATUMUMAB
     Indication: PRODUCT USED FOR UNKNOWN INDICATION
     Dates: start: 20170922
  2. VELCADE [Suspect]
     Active Substance: BORTEZOMIB
     Indication: PRODUCT USED FOR UNKNOWN INDICATION
     Dates: start: 20170922

REACTIONS (2)
  - Confusional state [Unknown]
  - Altered state of consciousness [Unknown]
